FAERS Safety Report 6650074-2 (Version None)
Quarter: 2010Q1

REPORT INFORMATION
  Report Type: 
  Country: None (occurrence: None)
  Receive Date: 20100322
  Receipt Date: 20100308
  Transmission Date: 20100710
  Serious: Yes (Hospitalization, Other)
  Sender: FDA-Public Use
  Company Number: 201002AGG00914

PATIENT
  Age: 49 Year
  Sex: Female

DRUGS (2)
  1. TIROFIBAN HYDROCHLORIDE (AGGRASTAT BISULFATE (75 MG) [Suspect]
     Indication: ANTICOAGULANT THERAPY
  2. CLOPIDOGREL BISULFATE [Suspect]
     Indication: ANTICOAGULANT THERAPY
     Dosage: 75 MG

REACTIONS (2)
  - INFUSION SITE HAEMORRHAGE [None]
  - OFF LABEL USE [None]
